FAERS Safety Report 5286544-1 (Version None)
Quarter: 2007Q1

REPORT INFORMATION
  Report Type: 
  Country: None (occurrence: None)
  Receive Date: 20070116
  Receipt Date: 20061117
  Transmission Date: 20070707
  Serious: No
  Sender: FDA-Public Use
  Company Number: 2006SP004097

PATIENT
  Age: 73 Year
  Sex: Female
  Weight: 66.9056 kg

DRUGS (8)
  1. LUNESTA [Suspect]
     Indication: INSOMNIA
     Dosage: 1 MG, ORAL
     Route: 048
     Dates: start: 20061001, end: 20061001
  2. LUNESTA [Suspect]
     Indication: INSOMNIA
     Dosage: 1 MG, ORAL
     Route: 048
     Dates: start: 20061114, end: 20061115
  3. UNISOM [Concomitant]
  4. VALSARTAN [Concomitant]
  5. PRILOSEC [Concomitant]
  6. PMS-CONJUGATED [Concomitant]
  7. ESTROGENS [Concomitant]
  8. SIMVASTATIN [Concomitant]

REACTIONS (2)
  - DRUG INEFFECTIVE [None]
  - INSOMNIA [None]
